FAERS Safety Report 7391816-0 (Version None)
Quarter: 2011Q2

REPORT INFORMATION
  Report Type: 
  Country: None (occurrence: None)
  Receive Date: 20110404
  Receipt Date: 20110323
  Transmission Date: 20111010
  Serious: Yes (Death, Other)
  Sender: FDA-Public Use
  Company Number: US-ROCHE-767582

PATIENT
  Sex: Male
  Weight: 106.1 kg

DRUGS (6)
  1. ACTEMRA [Suspect]
     Route: 042
     Dates: start: 20101130, end: 20101130
  2. ACTEMRA [Suspect]
     Route: 042
     Dates: start: 20110318, end: 20110318
  3. ACTEMRA [Suspect]
     Indication: RHEUMATOID ARTHRITIS
     Dosage: FORM-INFUSION
     Route: 042
     Dates: start: 20101102, end: 20101102
  4. ACTEMRA [Suspect]
     Route: 042
     Dates: start: 20101228, end: 20101228
  5. ACTEMRA [Suspect]
     Route: 042
     Dates: start: 20110121, end: 20110121
  6. ACTEMRA [Suspect]
     Route: 042
     Dates: start: 20110218, end: 20110218

REACTIONS (4)
  - CARDIAC ARREST [None]
  - MYOCARDIAL INFARCTION [None]
  - CARDIOMEGALY [None]
  - CORONARY ARTERY OCCLUSION [None]
